FAERS Safety Report 20737311 (Version 2)
Quarter: 2022Q2

REPORT INFORMATION
  Report Type: Spontaneous
  Country: US (occurrence: US)
  Receive Date: 20220421
  Receipt Date: 20220504
  Transmission Date: 20220720
  Serious: No
  Sender: FDA-Public Use
  Company Number: US-JNJFOC-20220436450

PATIENT
  Sex: Female

DRUGS (1)
  1. PONVORY [Suspect]
     Active Substance: PONESIMOD
     Indication: Product used for unknown indication
     Route: 065

REACTIONS (3)
  - Infection [Unknown]
  - Lymphocyte count increased [Unknown]
  - Fungal infection [Unknown]
